APPROVED DRUG PRODUCT: SORAFENIB TOSYLATE
Active Ingredient: SORAFENIB TOSYLATE
Strength: EQ 200MG BASE
Dosage Form/Route: TABLET;ORAL
Application: A217095 | Product #001 | TE Code: AB
Applicant: TORRENT PHARMACEUTICALS LTD
Approved: Apr 12, 2023 | RLD: No | RS: No | Type: RX